FAERS Safety Report 9281668 (Version 5)
Quarter: 2014Q1

REPORT INFORMATION
  Report Type: Spontaneous
  Country: US (occurrence: US)
  Receive Date: 20130509
  Receipt Date: 20140114
  Transmission Date: 20141002
  Serious: Yes (Hospitalization, Disabling, Other)
  Sender: FDA-Public Use
  Company Number: US-009507513-1305USA002382

PATIENT
  Sex: Female

DRUGS (8)
  1. FOSAMAX [Suspect]
     Indication: OSTEOPENIA
     Dosage: 10 MG, QD
     Route: 048
     Dates: start: 200111, end: 2008
  2. FOSAMAX [Suspect]
     Dosage: 70 MG, QW
     Route: 048
     Dates: start: 200111, end: 2008
  3. ALENDRONATE SODIUM [Suspect]
     Indication: OSTEOPENIA
     Dosage: 70 MG, QW
     Route: 048
     Dates: start: 2008, end: 201005
  4. VITAMINS (UNSPECIFIED) [Concomitant]
     Dosage: UNK, QD
     Dates: start: 1980
  5. CALCIUM (UNSPECIFIED) (+) VITAMIN D (UNSPECIFIED) [Concomitant]
     Dosage: 600MG/800IU, TID
     Dates: start: 1980
  6. LEVOTHYROXINE SODIUM [Concomitant]
     Indication: HYPOTHYROIDISM
     Dosage: UNK
     Dates: start: 1969
  7. ZOLOFT [Concomitant]
     Indication: DEPRESSION
     Dosage: UNK
     Dates: start: 1994
  8. LASIX (FUROSEMIDE SODIUM) [Concomitant]
     Indication: OEDEMA
     Dosage: UNK
     Dates: start: 1971

REACTIONS (18)
  - Femur fracture [Recovered/Resolved]
  - Intramedullary rod insertion [Unknown]
  - Femur fracture [Unknown]
  - Intramedullary rod insertion [Unknown]
  - Spinal fusion surgery [Unknown]
  - Back injury [Not Recovered/Not Resolved]
  - Iliotibial band syndrome [Unknown]
  - Iliotibial band syndrome [Unknown]
  - Blood cholesterol increased [Unknown]
  - Osteoporosis [Unknown]
  - Lichen planus [Unknown]
  - Arthritis [Unknown]
  - Osteoarthritis [Unknown]
  - Hypertension [Unknown]
  - Carpal tunnel decompression [Unknown]
  - Haematocrit decreased [Unknown]
  - Fluid retention [Unknown]
  - Anaemia [Unknown]
